FAERS Safety Report 9053132 (Version 1)
Quarter: 2013Q1

REPORT INFORMATION
  Report Type: Spontaneous
  Country: US (occurrence: US)
  Receive Date: 20130208
  Receipt Date: 20130208
  Transmission Date: 20140127
  Serious: No
  Sender: FDA-Public Use
  Company Number: US-BIOGENIDEC-2013BI010900

PATIENT
  Sex: Female

DRUGS (7)
  1. TYSABRI [Suspect]
     Indication: MULTIPLE SCLEROSIS
     Route: 042
     Dates: start: 20111129, end: 201210
  2. MORPHINE [Concomitant]
     Indication: BACK PAIN
  3. MORPHINE [Concomitant]
     Indication: LUMBAR VERTEBRAL FRACTURE
  4. DILAUDID [Concomitant]
     Indication: BACK PAIN
  5. DILAUDID [Concomitant]
     Indication: LUMBAR VERTEBRAL FRACTURE
  6. TRAMADOL [Concomitant]
     Indication: BACK PAIN
  7. TRAMADOL [Concomitant]
     Indication: LUMBAR VERTEBRAL FRACTURE

REACTIONS (17)
  - Neuralgia [Not Recovered/Not Resolved]
  - Agoraphobia [Not Recovered/Not Resolved]
  - Muscle spasms [Not Recovered/Not Resolved]
  - Post-traumatic stress disorder [Not Recovered/Not Resolved]
  - Hypoaesthesia [Not Recovered/Not Resolved]
  - Paraesthesia [Not Recovered/Not Resolved]
  - Burning sensation [Recovered/Resolved]
  - Insomnia [Not Recovered/Not Resolved]
  - Vision blurred [Unknown]
  - Fall [Recovered/Resolved]
  - Vertigo [Unknown]
  - Tremor [Recovered/Resolved]
  - Diarrhoea [Recovered/Resolved]
  - Arthralgia [Not Recovered/Not Resolved]
  - Fatigue [Not Recovered/Not Resolved]
  - Pyrexia [Recovered/Resolved]
  - Nausea [Recovered/Resolved]
